FAERS Safety Report 6228514-2 (Version None)
Quarter: 2009Q2

REPORT INFORMATION
  Report Type: 
  Country: None (occurrence: None)
  Receive Date: 20090611
  Receipt Date: 20090611
  Transmission Date: 20091009
  Serious: Yes (Other)
  Sender: FDA-Public Use
  Company Number: None

PATIENT
  Sex: Female
  Weight: 70 kg

DRUGS (1)
  1. OXCARBAZEPINE [Suspect]
     Indication: EPILEPSY
     Dosage: 300 MG 1 1/2 QAM PO 300 MG 2 QHS PO
     Route: 048
     Dates: start: 20080701

REACTIONS (2)
  - CONDITION AGGRAVATED [None]
  - CONVULSION [None]
